FAERS Safety Report 5016102-5 (Version None)
Quarter: 2006Q2

REPORT INFORMATION
  Report Type: 
  Country: None (occurrence: None)
  Receive Date: 20060414
  Receipt Date: 20060306
  Transmission Date: 20061013
  Serious: No
  Sender: FDA-Public Use
  Company Number: 2006SP001090

PATIENT
  Age: 73 Year
  Sex: Male
  Weight: 79.3795 kg

DRUGS (9)
  1. LUNESTA [Suspect]
     Indication: INSOMNIA
     Dosage: 2 MG;HS;ORAL
     Route: 048
     Dates: start: 20060304
  2. DESMOPRESSIN [Concomitant]
  3. LOPERAMIDE [Concomitant]
  4. ASPIRIN [Concomitant]
  5. ATORVASTATIN CALCIUM [Concomitant]
  6. PEPCID [Concomitant]
  7. NAPROXEN [Concomitant]
  8. MULTIVITAMIN [Concomitant]
  9. FISH OIL [Concomitant]

REACTIONS (1)
  - MIDDLE INSOMNIA [None]
